FAERS Safety Report 6399585-8 (Version None)
Quarter: 2009Q4

REPORT INFORMATION
  Report Type: 
  Country: None (occurrence: None)
  Receive Date: 20091013
  Receipt Date: 20091013
  Transmission Date: 20100525
  Serious: Yes (Hospitalization)
  Sender: FDA-Public Use
  Company Number: None

PATIENT
  Sex: Male

DRUGS (6)
  1. GMCSF [Suspect]
     Indication: PROSTATE CANCER
     Dosage: 250MG/M2 QD X 14 SQ
     Route: 058
     Dates: start: 20090325, end: 20090923
  2. OMEPRAZOLE [Concomitant]
  3. ACETAMINOPHEN [Concomitant]
  4. LEVOTHYROXINE SODIUM [Concomitant]
  5. METOPROLOL [Concomitant]
  6. DIATRIZOATE MEGLUMINE [Concomitant]

REACTIONS (1)
  - DEVICE RELATED INFECTION [None]
